FAERS Safety Report 15066151 (Version 1)
Quarter: 2018Q2

REPORT INFORMATION
  Report Type: Spontaneous
  Country: CH (occurrence: CH)
  Receive Date: 20180626
  Receipt Date: 20180626
  Transmission Date: 20180711
  Serious: Yes (Other)
  Sender: FDA-Public Use
  Company Number: CH-ASTRAZENECA-2018SE77990

PATIENT
  Age: 0 Day
  Sex: Female
  Weight: .9 kg

DRUGS (7)
  1. NEXIUM [Suspect]
     Active Substance: ESOMEPRAZOLE MAGNESIUM
     Dosage: EVERY DAY
     Route: 064
     Dates: end: 20180206
  2. EUTHYROX [Suspect]
     Active Substance: LEVOTHYROXINE SODIUM
     Indication: AUTOIMMUNE THYROIDITIS
     Dosage: 100.0UG UNKNOWN
     Route: 064
     Dates: start: 2017
  3. ISONIAZIDE [Suspect]
     Active Substance: ISONIAZID
     Indication: PULMONARY TUBERCULOSIS
     Route: 064
     Dates: start: 20171130, end: 20180206
  4. CORGARD [Suspect]
     Active Substance: NADOLOL
     Indication: CARDIAC HYPERTROPHY
     Route: 064
     Dates: start: 2017
  5. NOVORAPID [Suspect]
     Active Substance: INSULIN ASPART
     Indication: GESTATIONAL DIABETES
     Route: 064
     Dates: start: 20180222
  6. ISOPHANE INSULIN [Suspect]
     Active Substance: INSULIN NOS
     Indication: GESTATIONAL DIABETES
     Route: 064
     Dates: start: 20180215
  7. URSOFALK [Suspect]
     Active Substance: URSODIOL
     Indication: CHOLESTASIS OF PREGNANCY
     Route: 064
     Dates: start: 201802

REACTIONS (6)
  - Premature baby [Recovered/Resolved]
  - Neonatal respiratory distress syndrome [Recovered/Resolved]
  - Intraventricular haemorrhage neonatal [Unknown]
  - Exposure during pregnancy [Recovered/Resolved]
  - Hyperbilirubinaemia neonatal [Recovered/Resolved]
  - Bradypnoea [Recovered/Resolved]

NARRATIVE: CASE EVENT DATE: 20180227
